FAERS Safety Report 13893950 (Version 8)
Quarter: 2018Q1

REPORT INFORMATION
  Report Type: Spontaneous
  Country: US (occurrence: US)
  Receive Date: 20170822
  Receipt Date: 20180201
  Transmission Date: 20180508
  Serious: Yes (Hospitalization)
  Sender: FDA-Public Use
  Company Number: US-ACTELION-A-NJ2017-158373

PATIENT
  Age: 45 Year
  Sex: Female
  Weight: 53.97 kg

DRUGS (4)
  1. VELETRI [Suspect]
     Active Substance: EPOPROSTENOL
     Indication: PULMONARY ARTERIAL HYPERTENSION
     Dosage: 60 NG/KG, PER MIN
     Route: 042
  2. TRACLEER [Suspect]
     Active Substance: BOSENTAN
     Indication: PULMONARY ARTERIAL HYPERTENSION
     Dosage: 125 MG, BID
     Route: 048
  3. ADCIRCA [Concomitant]
     Active Substance: TADALAFIL
     Indication: PRODUCT USED FOR UNKNOWN INDICATION
     Dosage: 20 MG, QD
     Route: 065
  4. FERROUS SULFATE. [Suspect]
     Active Substance: FERROUS SULFATE
     Indication: PRODUCT USED FOR UNKNOWN INDICATION
     Dosage: UNK
     Route: 065
     Dates: end: 20171005

REACTIONS (37)
  - Swelling face [Not Recovered/Not Resolved]
  - Pallor [Recovering/Resolving]
  - Multiple allergies [Unknown]
  - Anaemia [Unknown]
  - Dry mouth [Unknown]
  - Malaise [Unknown]
  - Catheterisation cardiac [Unknown]
  - Diarrhoea [Recovered/Resolved]
  - Echocardiogram abnormal [Unknown]
  - Myalgia [Unknown]
  - Somnolence [Unknown]
  - Seasonal allergy [Unknown]
  - Nausea [Unknown]
  - Middle ear effusion [Unknown]
  - Abdominal pain upper [Recovering/Resolving]
  - Dyspepsia [Unknown]
  - Feeling abnormal [Unknown]
  - Cough [Unknown]
  - Fluid retention [Unknown]
  - Hypoacusis [Unknown]
  - Headache [Unknown]
  - Nasal congestion [Unknown]
  - Nasopharyngitis [Unknown]
  - Abdominal discomfort [Recovering/Resolving]
  - Device alarm issue [Unknown]
  - Motion sickness [Unknown]
  - Medical device change [Unknown]
  - Feeling of despair [Unknown]
  - Blood potassium decreased [Unknown]
  - Hypotension [Recovered/Resolved]
  - Increased upper airway secretion [Unknown]
  - Anxiety [Unknown]
  - Fatigue [Unknown]
  - Vitamin D decreased [Unknown]
  - Ear discomfort [Unknown]
  - Abdominal distension [Unknown]
  - Dental caries [Unknown]
